FAERS Safety Report 6575755-0 (Version None)
Quarter: 2010Q1

REPORT INFORMATION
  Report Type: 
  Country: None (occurrence: None)
  Receive Date: 20100209
  Receipt Date: 20100201
  Transmission Date: 20100710
  Serious: Yes (Other)
  Sender: FDA-Public Use
  Company Number: US-PFIZER INC-2010013678

PATIENT
  Sex: Female
  Weight: 81.633 kg

DRUGS (5)
  1. DETROL LA [Suspect]
     Indication: URINARY INCONTINENCE
     Dosage: 4 MG, 1X/DAY
     Route: 048
     Dates: start: 20070101
  2. PROPOXYPHENE [Concomitant]
     Indication: BACK PAIN
     Dosage: 150 MG, 1X/DAY
  3. SIMVASTATIN [Concomitant]
     Indication: BLOOD CHOLESTEROL INCREASED
     Dosage: 20 MG, 1X/DAY
  4. POTASSIUM [Concomitant]
     Dosage: 10 MEQ, 1X/DAY
  5. GABAPENTIN [Concomitant]
     Indication: NEUROPATHY PERIPHERAL
     Dosage: 300 MG, 2X/DAY

REACTIONS (3)
  - INCONTINENCE [None]
  - PARKINSON'S DISEASE [None]
  - POLLAKIURIA [None]
